FAERS Safety Report 6666678-7 (Version None)
Quarter: 2010Q2

REPORT INFORMATION
  Report Type: 
  Country: None (occurrence: None)
  Receive Date: 20100405
  Receipt Date: 20100309
  Transmission Date: 20101027
  Serious: No
  Sender: FDA-Public Use
  Company Number: 2007BI023079

PATIENT
  Age: 56 Year
  Sex: Female

DRUGS (1)
  1. TYSABRI [Suspect]
     Indication: MULTIPLE SCLEROSIS
     Route: 042
     Dates: start: 20071022, end: 20071022

REACTIONS (3)
  - ARTHRALGIA [None]
  - HYPERSENSITIVITY [None]
  - SECONDARY PROGRESSIVE MULTIPLE SCLEROSIS [None]
